FAERS Safety Report 10247177 (Version 5)
Quarter: 2015Q2

REPORT INFORMATION
  Report Type: Spontaneous
  Country: US (occurrence: US)
  Receive Date: 20140619
  Receipt Date: 20150501
  Transmission Date: 20150821
  Serious: Yes (Death, Hospitalization, Disabling, Other)
  Sender: FDA-Public Use
  Company Number: US-009507513-1406USA009034

PATIENT
  Sex: Female

DRUGS (4)
  1. FOSAMAX PLUS D [Suspect]
     Active Substance: ALENDRONATE SODIUM\CHOLECALCIFEROL
     Dosage: UNK MG, UNK
     Route: 048
     Dates: start: 20071002, end: 20080824
  2. ALENDRONATE SODIUM. [Suspect]
     Active Substance: ALENDRONATE SODIUM
     Dosage: 70 MG, QW
     Route: 048
     Dates: start: 20090127, end: 20120228
  3. FOSAMAX [Suspect]
     Active Substance: ALENDRONATE SODIUM
     Indication: OSTEOPENIA
     Dosage: UNK MG, UNK
     Route: 048
     Dates: start: 2000, end: 2012
  4. FOSAMAX [Suspect]
     Active Substance: ALENDRONATE SODIUM
     Dosage: 70 MG, QW
     Route: 048
     Dates: start: 20020214, end: 201205

REACTIONS (39)
  - Tooth extraction [Unknown]
  - Electrocardiogram abnormal [Unknown]
  - Cardiac murmur [Unknown]
  - Diastolic dysfunction [Unknown]
  - Right atrial dilatation [Unknown]
  - Back pain [Not Recovered/Not Resolved]
  - Gastrooesophageal reflux disease [Unknown]
  - Femur fracture [Not Recovered/Not Resolved]
  - Breast cancer [Unknown]
  - Depression [Not Recovered/Not Resolved]
  - Hypokalaemia [Unknown]
  - Inappropriate antidiuretic hormone secretion [Unknown]
  - Contusion [Unknown]
  - Anaemia postoperative [Unknown]
  - Death [Fatal]
  - Leukocytosis [Unknown]
  - Hyponatraemia [Recovering/Resolving]
  - Muscular weakness [Unknown]
  - Open reduction of fracture [Recovered/Resolved]
  - Dehydration [Unknown]
  - Osteoarthritis [Unknown]
  - Osteoarthritis [Unknown]
  - Dry eye [Unknown]
  - Depression [Unknown]
  - Hip arthroplasty [Unknown]
  - Asthma [Not Recovered/Not Resolved]
  - Normochromic normocytic anaemia [Unknown]
  - Fracture malunion [Unknown]
  - Pain in extremity [Unknown]
  - Mastectomy [Unknown]
  - Sepsis [Unknown]
  - Anxiety [Not Recovered/Not Resolved]
  - Impaired healing [Unknown]
  - Spinal fracture [Unknown]
  - Ankle fracture [Unknown]
  - Left ventricular hypertrophy [Unknown]
  - Anaemia postoperative [Recovering/Resolving]
  - Surgery [Not Recovered/Not Resolved]
  - Anxiety [Unknown]

NARRATIVE: CASE EVENT DATE: 2005
